FAERS Safety Report 24814113 (Version 1)
Quarter: 2025Q1

REPORT INFORMATION
  Report Type: Spontaneous
  Country: US (occurrence: US)
  Receive Date: 20250107
  Receipt Date: 20250107
  Transmission Date: 20250409
  Serious: Yes (Other)
  Sender: CSL BEHRING
  Company Number: US-BEH-2025190781

PATIENT
  Age: 35 Year
  Sex: Male
  Weight: 60.771 kg

DRUGS (2)
  1. HIZENTRA [Suspect]
     Active Substance: HUMAN IMMUNOGLOBULIN G
     Dosage: 2G, (1 GRAM/5 ML) ALTERNATING WITH 3 GRAMS (15 ML) EVERY OTHER DAY. (1 GRAM IN THE MORNING AND 1 GRA
     Route: 058
     Dates: start: 20240715
  2. HIZENTRA [Suspect]
     Active Substance: HUMAN IMMUNOGLOBULIN G
     Dosage: 3G, (1 GRAM/5 ML) ALTERNATING WITH 3 GRAMS (15 ML) EVERY OTHER DAY
     Route: 058
     Dates: start: 20240715

REACTIONS (2)
  - Immunoglobulins decreased [Unknown]
  - Liquid product physical issue [Unknown]
